FAERS Safety Report 6024120-3 (Version None)
Quarter: 2008Q4

REPORT INFORMATION
  Report Type: 
  Country: None (occurrence: None)
  Receive Date: 20081224
  Receipt Date: 20081209
  Transmission Date: 20090506
  Serious: Yes (Hospitalization)
  Sender: FDA-Public Use
  Company Number: 2008S1021870

PATIENT
  Age: 40 Year
  Sex: Female

DRUGS (3)
  1. GLIMEPIRIDE [Suspect]
     Indication: TYPE 2 DIABETES MELLITUS
     Dosage: 1 MG;DAILY
     Dates: start: 20050803
  2. PIOGLITAZONE HCL [Concomitant]
  3. BUFORMIN (BUFORMIN) [Concomitant]

REACTIONS (3)
  - ALKALOSIS [None]
  - ASTHMA [None]
  - LYMPHOCYTE STIMULATION TEST POSITIVE [None]
